FAERS Safety Report 8125321-0 (Version None)
Quarter: 2012Q1

REPORT INFORMATION
  Report Type: 
  Country: None (occurrence: None)
  Receive Date: 20120209
  Receipt Date: 20120203
  Transmission Date: 20120608
  Serious: Yes (Hospitalization)
  Sender: FDA-Public Use
  Company Number: US-GLAXOSMITHKLINE-A0940236A

PATIENT
  Age: 52 Year
  Sex: Female

DRUGS (6)
  1. SATOLOL [Concomitant]
  2. DEMADEX [Concomitant]
  3. LAMOTRIGINE [Suspect]
     Indication: CONVULSION
     Dosage: 100MG THREE TIMES PER DAY
     Route: 048
     Dates: start: 20110201, end: 20110206
  4. LAMICTAL XR [Suspect]
     Indication: CONVULSION
     Dosage: 300MG PER DAY
     Route: 048
     Dates: start: 20100901
  5. LISINOPRIL [Concomitant]
  6. NEURONTIN [Concomitant]

REACTIONS (9)
  - AMNESIA [None]
  - DIPLOPIA [None]
  - VISUAL ACUITY REDUCED [None]
  - NAUSEA [None]
  - VISUAL IMPAIRMENT [None]
  - VOMITING [None]
  - ADVERSE EVENT [None]
  - VISION BLURRED [None]
  - MIGRAINE [None]
